FAERS Safety Report 4394274-3 (Version None)
Quarter: 2004Q3

REPORT INFORMATION
  Report Type: 
  Country: None (occurrence: None)
  Receive Date: 20040707
  Receipt Date: 20040622
  Transmission Date: 20050211
  Serious: Yes (Congenital Anomaly)
  Sender: FDA-Public Use
  Company Number: US-JNJFOC-20040201456

PATIENT
  Sex: Male
  Weight: 3.1752 kg

DRUGS (5)
  1. TOPIRAMATE [Suspect]
     Indication: DRUG EXPOSURE DURING PREGNANCY
     Dosage: TRANSPLACENTAL
     Route: 064
     Dates: start: 20030218, end: 20030318
  2. PLACEBO (PLACEBO) TABLETS [Suspect]
     Indication: DRUG EXPOSURE DURING PREGNANCY
     Dosage: TRANSPLACENTAL
     Route: 064
     Dates: start: 20030218, end: 20030318
  3. WELLBUTRIN [Suspect]
     Indication: DRUG EXPOSURE DURING PREGNANCY
     Dosage: TRNASPLACENTAL
     Route: 064
     Dates: start: 20030301, end: 20031201
  4. PRENATAL VITAMIN (PRENATAL VITAMINS) UNSPECIFIED [Concomitant]
  5. TYLENOL [Concomitant]

REACTIONS (2)
  - DRUG EXPOSURE DURING PREGNANCY [None]
  - TALIPES [None]
